FAERS Safety Report 10132818 (Version 3)
Quarter: 2014Q2

REPORT INFORMATION
  Report Type: Spontaneous
  Country: US (occurrence: US)
  Receive Date: 20140428
  Receipt Date: 20140509
  Transmission Date: 20141212
  Serious: No
  Sender: FDA-Public Use
  Company Number: US-009507513-1404USA013706

PATIENT
  Age: 55 Year
  Sex: Female

DRUGS (2)
  1. MAXALT [Suspect]
     Indication: MIGRAINE
     Dosage: UNSPECIFIED/AS NEEDED
     Route: 048
     Dates: end: 20140326
  2. ANTACID (CALCIUM CARBONATE) [Concomitant]
     Dosage: UNK

REACTIONS (3)
  - Balance disorder [Recovering/Resolving]
  - Malaise [Recovering/Resolving]
  - Dizziness [Not Recovered/Not Resolved]
